FAERS Safety Report 17669941 (Version 1)
Quarter: 2020Q2

REPORT INFORMATION
  Report Type: Spontaneous
  Country: US (occurrence: US)
  Receive Date: 20200415
  Receipt Date: 20200415
  Transmission Date: 20200713
  Serious: No
  Sender: FDA-Public Use
  Company Number: US-PFIZER INC-2020153755

PATIENT
  Age: 60 Year
  Sex: Female

DRUGS (2)
  1. XELJANZ XR [Suspect]
     Active Substance: TOFACITINIB CITRATE
     Indication: RHEUMATOID ARTHRITIS
     Dosage: 11 MG, DAILY (30^S)
     Route: 048
     Dates: start: 201912, end: 20200410
  2. BIOTIN [Concomitant]
     Active Substance: BIOTIN

REACTIONS (5)
  - Pain [Unknown]
  - Dyspepsia [Unknown]
  - Decreased activity [Unknown]
  - Sensitivity to weather change [Unknown]
  - Gastrooesophageal reflux disease [Unknown]
